FAERS Safety Report 18485681 (Version 1)
Quarter: 2020Q4

REPORT INFORMATION
  Report Type: Spontaneous
  Country: IT (occurrence: IT)
  Receive Date: 20201110
  Receipt Date: 20201110
  Transmission Date: 20210114
  Serious: Yes (Other)
  Sender: FDA-Public Use
  Company Number: NVSC2020IT299817

PATIENT
  Age: 79 Year
  Sex: Male

DRUGS (6)
  1. AZITHROMYCIN DIHYDRATE. [Interacting]
     Active Substance: AZITHROMYCIN DIHYDRATE
     Indication: COVID-19
     Dosage: 500 MG, QD
     Route: 065
  2. METHYLPREDNISOLONE. [Suspect]
     Active Substance: METHYLPREDNISOLONE
     Indication: COVID-19
     Dosage: 20 MG, QD
     Route: 065
  3. BISOPROLOL [Suspect]
     Active Substance: BISOPROLOL
     Indication: COVID-19
     Dosage: 2.5 MG, QD
     Route: 065
  4. HYDROXYCHLOROQUINE [Interacting]
     Active Substance: HYDROXYCHLOROQUINE
     Indication: COVID-19
     Dosage: 200 MG, QD
     Route: 065
  5. ENTECAVIR. [Suspect]
     Active Substance: ENTECAVIR
     Indication: COVID-19
     Dosage: 0.5 MG, QD
     Route: 065
  6. ENOXAPARIN SODIUM. [Suspect]
     Active Substance: ENOXAPARIN SODIUM
     Indication: COVID-19
     Dosage: 6000 IU, Q12H
     Route: 065

REACTIONS (5)
  - Cholecystitis [Recovered/Resolved]
  - Drug interaction [Unknown]
  - Product use in unapproved indication [Unknown]
  - Off label use [Unknown]
  - Haemorrhagic cholecystitis [Recovered/Resolved]
